FAERS Safety Report 26058955 (Version 1)
Quarter: 2025Q4

REPORT INFORMATION
  Report Type: Spontaneous
  Country: US (occurrence: US)
  Receive Date: 20251118
  Receipt Date: 20251118
  Transmission Date: 20260117
  Serious: No
  Sender: COLLEGIUM PHARMACEUTICAL
  Company Number: US-COLLEGIUM PHARMACEUTICAL, INC.-20251002637

PATIENT

DRUGS (2)
  1. BELBUCA [Suspect]
     Active Substance: BUPRENORPHINE HYDROCHLORIDE
     Indication: Pain
     Dosage: 150 MICROGRAM, BID
     Route: 002
  2. BELBUCA [Suspect]
     Active Substance: BUPRENORPHINE HYDROCHLORIDE
     Dosage: 150 MICROGRAM, QID (HALF OF A FILM EVERY 6 HOURS)
     Route: 002

REACTIONS (4)
  - Product communication issue [Unknown]
  - Therapeutic product effect incomplete [Unknown]
  - Wrong technique in product usage process [Unknown]
  - Off label use [Unknown]
